FAERS Safety Report 12054155 (Version 1)
Quarter: 2016Q1

REPORT INFORMATION
  Report Type: Spontaneous
  Country: GB (occurrence: GB)
  Receive Date: 20160209
  Receipt Date: 20160209
  Transmission Date: 20160526
  Serious: Yes (Hospitalization)
  Sender: FDA-Public Use
  Company Number: GB-JNJFOC-20160121420

PATIENT
  Age: 15 Month
  Sex: Male

DRUGS (2)
  1. CALPROFEN [Suspect]
     Active Substance: IBUPROFEN
     Route: 065
  2. CALPROFEN [Suspect]
     Active Substance: IBUPROFEN
     Indication: COUGH
     Route: 065

REACTIONS (3)
  - Off label use [Unknown]
  - Product use issue [Unknown]
  - Stevens-Johnson syndrome [Recovered/Resolved]

NARRATIVE: CASE EVENT DATE: 20151227
